FAERS Safety Report 6075747-4 (Version None)
Quarter: 2009Q1

REPORT INFORMATION
  Report Type: 
  Country: None (occurrence: None)
  Receive Date: 20090209
  Receipt Date: 20090205
  Transmission Date: 20090719
  Serious: Yes (Hospitalization)
  Sender: FDA-Public Use
  Company Number: 2009SP002636

PATIENT
  Age: 30 Year
  Sex: Male

DRUGS (1)
  1. DESLORATADINE [Suspect]
     Indication: FOOD ALLERGY
     Dosage: 5 MG; QD; PO
     Route: 048
     Dates: start: 20090101

REACTIONS (1)
  - EPILEPSY [None]
